FAERS Safety Report 8920917 (Version 1)
Quarter: 2012Q4

REPORT INFORMATION
  Report Type: 
  Country: AT (occurrence: AT)
  Receive Date: 20121121
  Receipt Date: 20121121
  Transmission Date: 20130627
  Serious: Yes (Other)
  Sender: FDA-Public Use
  Company Number: AT-ASTRAZENECA-2012SE85866

PATIENT
  Age: 46 Year
  Sex: Male
  Weight: 130 kg

DRUGS (1)
  1. CRESTOR [Suspect]
     Indication: CORONARY ARTERY DISEASE
     Route: 048
     Dates: start: 20121003, end: 20121020

REACTIONS (3)
  - Drug intolerance [Recovered/Resolved]
  - Gastrointestinal pain [Recovered/Resolved]
  - Drug prescribing error [Unknown]
